FAERS Safety Report 25820591 (Version 1)
Quarter: 2025Q3

REPORT INFORMATION
  Report Type: Spontaneous
  Country: GB (occurrence: GB)
  Receive Date: 20250919
  Receipt Date: 20250919
  Transmission Date: 20251020
  Serious: Yes (Hospitalization)
  Sender: QUAGEN PHARMACEUTICALS
  Company Number: GB-QUAGEN-2025QUALIT00626

PATIENT
  Age: 7 Decade
  Sex: Male

DRUGS (4)
  1. OXYCODONE HYDROCHLORIDE [Suspect]
     Active Substance: OXYCODONE HYDROCHLORIDE
     Indication: Pain
     Route: 048
  2. OXYCODONE HYDROCHLORIDE [Suspect]
     Active Substance: OXYCODONE HYDROCHLORIDE
     Route: 048
  3. OXYCODONE HYDROCHLORIDE [Suspect]
     Active Substance: OXYCODONE HYDROCHLORIDE
     Route: 048
  4. NITROUS OXIDE\OXYGEN [Concomitant]
     Active Substance: NITROUS OXIDE\OXYGEN
     Indication: Product used for unknown indication
     Route: 065

REACTIONS (1)
  - Hyperaesthesia [Recovered/Resolved]
